FAERS Safety Report 8590875-7 (Version None)
Quarter: 2012Q3

REPORT INFORMATION
  Report Type: 
  Country: None (occurrence: None)
  Receive Date: 20120813
  Receipt Date: 20120718
  Transmission Date: 20120928
  Serious: Yes (Other)
  Sender: FDA-Public Use
  Company Number: JP-009507513-1207JPN000638

PATIENT

DRUGS (12)
  1. TELAVIC [Suspect]
     Indication: HEPATITIS C
     Route: 048
     Dates: start: 20120621, end: 20120624
  2. MUCOSTA [Concomitant]
     Indication: PROPHYLAXIS
     Route: 048
     Dates: start: 20120621, end: 20120627
  3. REBETOL [Suspect]
     Indication: HEPATITIS C
     Dosage: 800 MG ONCE
     Route: 048
     Dates: start: 20120621, end: 20120624
  4. [THERAPY UNSPECIFIED] [Concomitant]
     Indication: PROPHYLAXIS
     Dosage: 180 MG ONCE
     Route: 048
     Dates: start: 20120621, end: 20120625
  5. URSO 250 [Concomitant]
     Indication: HEPATITIS C
     Route: 048
  6. HYPOCA [Concomitant]
     Indication: HYPERTENSION
     Dosage: 10 MG ONCE
     Route: 048
  7. NIZORAL [Concomitant]
     Indication: SEBORRHOEIC DERMATITIS
     Dosage: PROPER QUANTITY/DAY
     Route: 061
     Dates: start: 20120626
  8. PEG-INTRON [Suspect]
     Indication: HEPATITIS C
     Dosage: 1.5MCG/KG/WEEK
     Route: 058
     Dates: start: 20120621, end: 20120624
  9. WARFARIN SODIUM [Concomitant]
     Indication: ATRIAL FIBRILLATION
     Dosage: 3 MG ONCE
     Route: 048
  10. TELAPREVIR [Suspect]
     Dosage: 2250 MG ONCE
     Route: 048
     Dates: start: 20120621, end: 20120624
  11. [THERAPY UNSPECIFIED] [Concomitant]
     Indication: CONSTIPATION
     Dosage: 2.6 G, ONCE
     Route: 054
     Dates: start: 20120627, end: 20120627
  12. BISOPROLOL FUMARATE [Concomitant]
     Indication: HYPERTENSION
     Dosage: 2.5 MG ONCE
     Route: 048

REACTIONS (4)
  - RENAL FAILURE ACUTE [None]
  - BLOOD URIC ACID INCREASED [None]
  - BLOOD CREATININE INCREASED [None]
  - RENAL IMPAIRMENT [None]
